FAERS Safety Report 9494063 (Version 1)
Quarter: 2013Q3

REPORT INFORMATION
  Report Type: Spontaneous
  Country: US (occurrence: None)
  Receive Date: 20130829
  Receipt Date: 20130829
  Transmission Date: 20140515
  Serious: Yes (Other)
  Sender: FDA-Public Use
  Company Number: None

PATIENT
  Age: 47 Year
  Sex: Female
  Weight: 56 kg

DRUGS (8)
  1. BUPROPION HCL [Suspect]
     Indication: DEPRESSION
     Route: 048
     Dates: start: 20130717, end: 20130815
  2. WELLBUTRIN [Concomitant]
  3. ALPRAZOLAM [Concomitant]
  4. PROPRANOLOL HCL [Concomitant]
  5. HYDROCODENE/SCET [Concomitant]
  6. B12 [Concomitant]
  7. D3 [Concomitant]
  8. CRANBERRY [Concomitant]

REACTIONS (2)
  - Fatigue [None]
  - Accident [None]
